FAERS Safety Report 8073889-5 (Version None)
Quarter: 2012Q1

REPORT INFORMATION
  Report Type: 
  Country: None (occurrence: None)
  Receive Date: 20120126
  Receipt Date: 20120123
  Transmission Date: 20120608
  Serious: Yes (Death, Life-Threatening, Hospitalization)
  Sender: FDA-Public Use
  Company Number: PHHO2012NL001577

PATIENT
  Sex: Female

DRUGS (11)
  1. SANDIMMUNE [Suspect]
     Dosage: 450 MG, UNK
     Route: 042
     Dates: start: 20111117, end: 20111120
  2. PREDNISONE TAB [Concomitant]
     Dosage: 60 MG, UNK
     Route: 042
     Dates: start: 20111117
  3. VORICONAZOLE [Concomitant]
     Dosage: 400 MG, UNK
     Route: 042
     Dates: start: 20111117, end: 20111119
  4. MYCOPHENOLIC ACID [Suspect]
     Indication: HAEMATOLOGICAL MALIGNANCY
     Dosage: UNK
     Dates: start: 20111110
  5. SANDIMMUNE [Suspect]
     Dosage: 500 MG, UNK
     Route: 042
     Dates: start: 20111115, end: 20111117
  6. ZOLPIDEM [Concomitant]
     Indication: INSOMNIA
     Dosage: 10 MG, UNK
     Route: 048
     Dates: start: 20111113, end: 20111119
  7. LORAZEPAM [Concomitant]
     Indication: NAUSEA
     Dosage: 4 MG, QD
     Route: 048
     Dates: start: 20111109, end: 20111119
  8. SANDIMMUNE [Suspect]
     Dosage: 300 MG, UNK
     Route: 042
     Dates: start: 20111111, end: 20111115
  9. VORICONAZOLE [Concomitant]
     Dosage: 800 MG, UNK
     Route: 042
     Dates: start: 20111116, end: 20111117
  10. SANDIMMUNE [Suspect]
     Indication: HAEMATOLOGICAL MALIGNANCY
     Dosage: 200 MG, UNK
     Route: 042
     Dates: start: 20111107, end: 20111111
  11. HALOPERIDOL [Concomitant]
     Indication: NAUSEA
     Dosage: 7.5 MG, UNK
     Route: 042
     Dates: start: 20111109, end: 20111117

REACTIONS (2)
  - RENAL FAILURE ACUTE [None]
  - HEPATORENAL SYNDROME [None]
